FAERS Safety Report 4470377-X (Version None)
Quarter: 2004Q3

REPORT INFORMATION
  Report Type: 
  Country: None (occurrence: None)
  Receive Date: 20040910
  Receipt Date: 20040712
  Transmission Date: 20050211
  Serious: Yes (Other)
  Sender: FDA-Public Use
  Company Number: 2004-00193

PATIENT
  Age: 62 Year
  Sex: Male
  Weight: 94.3 kg

DRUGS (6)
  1. VELCADE [Suspect]
     Indication: MULTIPLE MYELOMA
     Dosage: INTRAVENOUS
     Route: 042
     Dates: start: 20040602, end: 20040709
  2. PEPCID AC [Concomitant]
  3. COUMADIN [Concomitant]
  4. MULTIVITAMIN [Concomitant]
  5. THALIDOMIDE [Concomitant]
  6. DEXAMETHASONE [Concomitant]

REACTIONS (2)
  - DYSPNOEA [None]
  - HYPOTENSION [None]
